FAERS Safety Report 16467894 (Version 2)
Quarter: 2019Q3

REPORT INFORMATION
  Report Type: Spontaneous
  Country: GB (occurrence: GB)
  Receive Date: 20190624
  Receipt Date: 20190702
  Transmission Date: 20191004
  Serious: Yes (Hospitalization)
  Sender: FDA-Public Use
  Company Number: GB-ACCORD-134755

PATIENT
  Age: 81 Year
  Sex: Male

DRUGS (10)
  1. NITROFURANTOIN/NITROFURANTOIN SODIUM [Concomitant]
     Dosage: ONLY HAD 2 DOSES BEFORE COMING INTO HOSPITAL.
  2. LOPERAMIDE [Concomitant]
     Active Substance: LOPERAMIDE
  3. PREGABALIN. [Suspect]
     Active Substance: PREGABALIN
     Indication: PRODUCT USED FOR UNKNOWN INDICATION
  4. PERINDOPRIL [Concomitant]
     Active Substance: PERINDOPRIL
     Dosage: IN THE MORNING.
  5. PREGABALIN. [Concomitant]
     Active Substance: PREGABALIN
  6. PARACETAMOL [Concomitant]
     Active Substance: ACETAMINOPHEN
     Dosage: ONE OR TWO FOUR TIMES PER DAY AS NEEDED.
  7. FOLIC ACID. [Concomitant]
     Active Substance: FOLIC ACID
     Dosage: IN THE MORNING.
  8. SIMVASTATIN. [Concomitant]
     Active Substance: SIMVASTATIN
     Dosage: AT NIGHT.
  9. SERTRALINE [Suspect]
     Active Substance: SERTRALINE HYDROCHLORIDE
     Indication: PRODUCT USED FOR UNKNOWN INDICATION
     Dosage: IN THE MORNING, ALSO 50 MG(DOSE INCREASED)
  10. ACETYLSALICYLIC ACID [Concomitant]
     Active Substance: ASPIRIN
     Dosage: IN THE MORNING.

REACTIONS (1)
  - Parkinsonism [Unknown]
